FAERS Safety Report 7999657-8 (Version None)
Quarter: 2011Q4

REPORT INFORMATION
  Report Type: 
  Country: None (occurrence: None)
  Receive Date: 20111221
  Receipt Date: 20111212
  Transmission Date: 20120403
  Serious: Yes (Other)
  Sender: FDA-Public Use
  Company Number: US-ASTRAZENECA-2011SE75007

PATIENT
  Age: 20 Year
  Sex: Female
  Weight: 74.8 kg

DRUGS (6)
  1. ADVAIR DISKUS 100/50 [Concomitant]
  2. SYMBICORT [Suspect]
     Dosage: TWO PUFFS BID
     Route: 055
  3. PROVENTIL [Concomitant]
     Dates: start: 20010101
  4. SYMBICORT [Suspect]
     Dosage: TWO PUFFS TID
     Route: 055
  5. SYMBICORT [Suspect]
     Indication: ASTHMA
     Dosage: 160 / 4.5 MCG DAILY
     Route: 055
     Dates: start: 20070101
  6. SINGULAIR [Concomitant]
     Dates: start: 20060101

REACTIONS (1)
  - ANAPHYLACTIC REACTION [None]
